FAERS Safety Report 4360824-6 (Version None)
Quarter: 2004Q2

REPORT INFORMATION
  Report Type: 
  Country: None (occurrence: None)
  Receive Date: 20040519
  Receipt Date: 20040519
  Transmission Date: 20050107
  Serious: No
  Sender: FDA-Public Use
  Company Number: None

PATIENT
  Age: 30 Year
  Sex: Female
  Weight: 115.6672 kg

DRUGS (3)
  1. REGLAN [Suspect]
     Indication: HYSTEROSCOPY
     Dosage: 10 MGM IV
     Route: 042
     Dates: start: 20040503
  2. REGLAN [Suspect]
     Indication: PREOPERATIVE CARE
     Dosage: 10 MGM IV
     Route: 042
     Dates: start: 20040503
  3. REGLAN [Suspect]
     Indication: UTERINE DILATION AND CURETTAGE
     Dosage: 10 MGM IV
     Route: 042
     Dates: start: 20040503

REACTIONS (2)
  - AGITATION [None]
  - DIZZINESS [None]
